FAERS Safety Report 6822507-X (Version None)
Quarter: 2010Q3

REPORT INFORMATION
  Report Type: 
  Country: None (occurrence: None)
  Receive Date: 20100708
  Receipt Date: 20100701
  Transmission Date: 20110219
  Serious: Yes (Other)
  Sender: FDA-Public Use
  Company Number: FR-WYE-G06204310

PATIENT
  Sex: Male
  Weight: 87 kg

DRUGS (2)
  1. TORISEL [Suspect]
     Indication: MANTLE CELL LYMPHOMA
     Dosage: 335 MG ONCE
     Route: 042
     Dates: start: 20100510, end: 20100510
  2. TORISEL [Suspect]
     Dosage: 335 MG ONCE
     Route: 042
     Dates: start: 20100517, end: 20100517

REACTIONS (4)
  - ACCIDENTAL OVERDOSE [None]
  - ASTHENIA [None]
  - PANCYTOPENIA [None]
  - WRONG TECHNIQUE IN DRUG USAGE PROCESS [None]
